APPROVED DRUG PRODUCT: SORAFENIB TOSYLATE
Active Ingredient: SORAFENIB TOSYLATE
Strength: EQ 200MG BASE
Dosage Form/Route: TABLET;ORAL
Application: A209050 | Product #001 | TE Code: AB
Applicant: YABAO PHARMACEUTICAL CO LTD BEIJING
Approved: Nov 9, 2022 | RLD: No | RS: No | Type: RX